FAERS Safety Report 8111028-2 (Version None)
Quarter: 2012Q1

REPORT INFORMATION
  Report Type: 
  Country: None (occurrence: None)
  Receive Date: 20120203
  Receipt Date: 20110225
  Transmission Date: 20120608
  Serious: No
  Sender: FDA-Public Use
  Company Number: US-GLAXOSMITHKLINE-A0915386A

PATIENT
  Age: 41 Year
  Sex: Male

DRUGS (3)
  1. DEPAKOTE [Concomitant]
  2. CYMBALTA [Concomitant]
  3. LAMOTRIGINE [Suspect]
     Indication: BIPOLAR DISORDER
     Dosage: 100MG PER DAY
     Route: 048
     Dates: start: 20110101

REACTIONS (3)
  - TINEA INFECTION [None]
  - PRURITUS [None]
  - RASH [None]
